FAERS Safety Report 7071203-5 (Version None)
Quarter: 2010Q4

REPORT INFORMATION
  Report Type: 
  Country: None (occurrence: None)
  Receive Date: 20101029
  Receipt Date: 20101020
  Transmission Date: 20110411
  Serious: Yes (Hospitalization, Other)
  Sender: FDA-Public Use
  Company Number: US-ASTRAZENECA-2008UW18954

PATIENT
  Age: 66 Year
  Sex: Female

DRUGS (3)
  1. ARIMIDEX [Suspect]
     Indication: BREAST CANCER
     Route: 048
     Dates: start: 20030501, end: 20100901
  2. HIGH BLOOD PRESSURE MEDICINE [Concomitant]
  3. CHOLESTEROL MEDICINE [Concomitant]

REACTIONS (6)
  - ATRIAL FIBRILLATION [None]
  - CARDIOVERSION [None]
  - CELLULITIS [None]
  - DRUG DOSE OMISSION [None]
  - LYMPHADENOPATHY [None]
  - THERMAL BURN [None]
